FAERS Safety Report 4873479-9 (Version None)
Quarter: 2005Q4

REPORT INFORMATION
  Report Type: 
  Country: None (occurrence: None)
  Receive Date: 20051201
  Receipt Date: 20050822
  Transmission Date: 20060501
  Serious: No
  Sender: FDA-Public Use
  Company Number: 2005PV001393

PATIENT
  Age: 72 Year
  Sex: Female
  Weight: 90.7194 kg

DRUGS (16)
  1. BYETTA [Suspect]
     Indication: DIABETES MELLITUS NON-INSULIN-DEPENDENT
     Dosage: SEE IMAGE
     Route: 058
     Dates: start: 20050822
  2. IMDUR [Concomitant]
  3. METOPROLOL [Concomitant]
  4. LIPITOR [Concomitant]
  5. ASPIRIN [Concomitant]
  6. GLUCOPHAGE [Concomitant]
  7. ALTACE [Concomitant]
  8. LASIX [Concomitant]
  9. LANTUS [Concomitant]
  10. LUMIGAN OPHTHALMIC [Concomitant]
  11. COSPOT [Concomitant]
  12. GLUCOSAMINE [Concomitant]
  13. FISH OIL [Concomitant]
  14. CALCIUM GLUCONATE [Concomitant]
  15. ASCORBIC ACID [Concomitant]
  16. COENZYME Q10 [Concomitant]

REACTIONS (5)
  - BLOOD GLUCOSE INCREASED [None]
  - DECREASED APPETITE [None]
  - DIARRHOEA [None]
  - HEADACHE [None]
  - IRRITABILITY [None]
